FAERS Safety Report 9896890 (Version 4)
Quarter: 2014Q2

REPORT INFORMATION
  Report Type: Spontaneous
  Country: US (occurrence: US)
  Receive Date: 20140214
  Receipt Date: 20140504
  Transmission Date: 20141212
  Serious: Yes (Other)
  Sender: FDA-Public Use
  Company Number: US-009507513-1402USA003199

PATIENT
  Age: 25 Year
  Sex: Female

DRUGS (1)
  1. IMPLANON [Suspect]
     Dosage: UNK
     Route: 030
     Dates: start: 2010, end: 2014

REACTIONS (10)
  - Surgery [Recovered/Resolved]
  - Device deployment issue [Recovered/Resolved]
  - Complication of device removal [Recovered/Resolved]
  - Pain [Recovered/Resolved]
  - Incorrect route of drug administration [Unknown]
  - Incorrect drug administration duration [Unknown]
  - Medical device complication [Recovered/Resolved]
  - Device difficult to use [Recovered/Resolved]
  - Hypersensitivity [Recovered/Resolved]
  - General anaesthesia [Recovered/Resolved]
